FAERS Safety Report 7392503-5 (Version None)
Quarter: 2011Q2

REPORT INFORMATION
  Report Type: 
  Country: None (occurrence: None)
  Receive Date: 20110404
  Receipt Date: 20110330
  Transmission Date: 20111010
  Serious: Yes (Death, Other)
  Sender: FDA-Public Use
  Company Number: NL-ROXANE LABORATORIES, INC.-2011-RO-00430RO

PATIENT
  Age: 81 Year
  Sex: Male

DRUGS (8)
  1. HALOPERIDOL [Suspect]
     Route: 058
  2. MORPHINE [Suspect]
     Dosage: 15 MG
     Route: 058
  3. HALOPERIDOL [Suspect]
     Dosage: 2 MG
     Route: 002
  4. MIDAZOLAM HCL [Suspect]
     Dosage: 3 MG
     Route: 058
  5. FENTANYL [Suspect]
     Route: 060
  6. MORPHINE [Suspect]
     Indication: PAIN
     Dosage: 40 MG
     Route: 042
  7. HALOPERIDOL [Suspect]
     Dosage: 3 MG
     Route: 058
  8. FENTANYL [Suspect]
     Indication: PAIN
     Route: 062

REACTIONS (3)
  - DELIRIUM [None]
  - DEATH [None]
  - AZOTAEMIA [None]
